FAERS Safety Report 16392775 (Version 1)
Quarter: 2019Q2

REPORT INFORMATION
  Report Type: Spontaneous
  Country: IL (occurrence: IL)
  Receive Date: 20190605
  Receipt Date: 20190605
  Transmission Date: 20190711
  Serious: Yes (Other)
  Sender: FDA-Public Use
  Company Number: IL-TEVA-2019-IL-1060273

PATIENT
  Age: 77 Year
  Sex: Male

DRUGS (1)
  1. TAMSULOSIN [Suspect]
     Active Substance: TAMSULOSIN
     Indication: BENIGN PROSTATIC HYPERPLASIA
     Dosage: .5 MILLIGRAM DAILY;
     Route: 065
     Dates: end: 2019

REACTIONS (2)
  - Cataract [Not Recovered/Not Resolved]
  - Therapeutic product effect variable [Unknown]
